FAERS Safety Report 23478478 (Version 1)
Quarter: 2024Q1

REPORT INFORMATION
  Report Type: Report from Study
  Country: US (occurrence: US)
  Receive Date: 20240204
  Receipt Date: 20240204
  Transmission Date: 20240409
  Serious: No
  Sender: FDA-Public Use
  Company Number: US-EXELIXIS-CABO-23069765

PATIENT
  Age: 70 Year
  Sex: Male

DRUGS (16)
  1. CABOMETYX [Suspect]
     Active Substance: CABOZANTINIB S-MALATE
     Indication: Adrenocortical carcinoma
     Dosage: 60 MG, QD
     Dates: start: 20231011, end: 20240116
  2. METOPROLOL TARTRATE [Concomitant]
     Active Substance: METOPROLOL TARTRATE
  3. LOSARTAN [Concomitant]
     Active Substance: LOSARTAN
  4. PROBIOTICS NOS [Concomitant]
     Active Substance: PROBIOTICS NOS
  5. PANTOPRAZOLE [Concomitant]
     Active Substance: PANTOPRAZOLE
  6. LEVOTHYROXINE [Concomitant]
     Active Substance: LEVOTHYROXINE\LEVOTHYROXINE SODIUM
  7. FLONASE [Concomitant]
     Active Substance: FLUTICASONE PROPIONATE
  8. ALLEGRA [Concomitant]
     Active Substance: FEXOFENADINE HYDROCHLORIDE
  9. TRAMADOL [Concomitant]
     Active Substance: TRAMADOL\TRAMADOL HYDROCHLORIDE
  10. ONDANSETRON [Concomitant]
     Active Substance: ONDANSETRON
  11. OLANZAPINE [Concomitant]
     Active Substance: OLANZAPINE
  12. GABAPENTIN [Concomitant]
     Active Substance: GABAPENTIN
  13. GUAIFENESIN AND CODEINE PHOSPHATE [Concomitant]
     Active Substance: CODEINE PHOSPHATE\GUAIFENESIN
  14. HYDROCORTISONE [Concomitant]
     Active Substance: HYDROCORTISONE
  15. VITAMIN C [Concomitant]
     Active Substance: ASCORBIC ACID
  16. VITAMIN D NOS [Concomitant]
     Active Substance: VITAMIN D NOS

REACTIONS (7)
  - Blood pressure increased [Recovering/Resolving]
  - Constipation [Recovered/Resolved]
  - Diarrhoea [Recovered/Resolved]
  - Alanine aminotransferase increased [Recovering/Resolving]
  - Injection site pain [Not Recovered/Not Resolved]
  - Fatigue [Not Recovered/Not Resolved]
  - Off label use [Unknown]

NARRATIVE: CASE EVENT DATE: 20231217
